FAERS Safety Report 8774694 (Version 1)
Quarter: 2012Q4

REPORT INFORMATION
  Report Type: 
  Country: US (occurrence: US)
  Receive Date: 20120910
  Receipt Date: 20120910
  Transmission Date: 20130627
  Serious: No
  Sender: FDA-Public Use
  Company Number: US-PFIZER INC-2012218868

PATIENT

DRUGS (3)
  1. ZOLOFT [Suspect]
  2. LIPITOR [Suspect]
  3. ACCUPRIL [Suspect]

REACTIONS (1)
  - Blood glucose decreased [Unknown]
